FAERS Safety Report 7233935-5 (Version None)
Quarter: 2011Q1

REPORT INFORMATION
  Report Type: 
  Country: None (occurrence: None)
  Receive Date: 20110119
  Receipt Date: 20100520
  Transmission Date: 20110831
  Serious: Yes (Other)
  Sender: FDA-Public Use
  Company Number: US-TEVA-228017USA

PATIENT
  Sex: Female

DRUGS (10)
  1. LORAZEPAM [Concomitant]
  2. CYCLOBENZAPRINE HYDROCHLORIDE [Concomitant]
  3. ZOLMITRIPTAN [Concomitant]
  4. PROCHLORPERAZINE EDISYLATE [Concomitant]
  5. VERAPAMIL [Concomitant]
  6. OXYGEN [Suspect]
     Indication: HEADACHE
     Dosage: PRN
  7. COPAXONE [Suspect]
     Indication: MULTIPLE SCLEROSIS
     Route: 058
     Dates: start: 20070901, end: 20071001
  8. CITALOPRAM HYDROBROMIDE [Concomitant]
  9. KELNOR 1/35 [Concomitant]
  10. PROCHLORPERAZINE [Concomitant]

REACTIONS (5)
  - HYPOTENSION [None]
  - ERYTHEMA [None]
  - ANAPHYLACTIC REACTION [None]
  - URINARY INCONTINENCE [None]
  - FAECAL INCONTINENCE [None]
